FAERS Safety Report 7972807-5 (Version None)
Quarter: 2011Q4

REPORT INFORMATION
  Report Type: 
  Country: None (occurrence: None)
  Receive Date: 20111213
  Receipt Date: 20111206
  Transmission Date: 20120403
  Serious: No
  Sender: FDA-Public Use
  Company Number: US-PFIZER INC-2011299647

PATIENT
  Sex: Female
  Weight: 102.04 kg

DRUGS (1)
  1. MORPHINE SULFATE [Suspect]

REACTIONS (3)
  - NAUSEA [None]
  - VOMITING [None]
  - MENTAL STATUS CHANGES [None]
